FAERS Safety Report 9958897 (Version 2)
Quarter: 2014Q1

REPORT INFORMATION
  Report Type: Spontaneous
  Country: DE (occurrence: None)
  Receive Date: 20140227
  Receipt Date: 20140318
  Transmission Date: 20141002
  Serious: Yes (Death, Other)
  Sender: FDA-Public Use
  Company Number: 1402-0392

PATIENT
  Age: 88 Year
  Sex: Female

DRUGS (2)
  1. EYLEA(AFLIBERCEPT) (INJECTION) (AFLIBERCEPT) [Suspect]
     Route: 031
  2. HYPERTENSIVE THERAPY [Concomitant]

REACTIONS (2)
  - Blood pressure increased [None]
  - Blood pressure systolic increased [None]
